FAERS Safety Report 23521656 (Version 2)
Quarter: 2024Q1

REPORT INFORMATION
  Report Type: Spontaneous
  Country: FR (occurrence: FR)
  Receive Date: 20240214
  Receipt Date: 20240325
  Transmission Date: 20240409
  Serious: Yes (Congenital Anomaly)
  Sender: FDA-Public Use
  Company Number: None

PATIENT
  Age: 4 Week
  Sex: Female

DRUGS (2)
  1. ALPRAZOLAM [Suspect]
     Active Substance: ALPRAZOLAM
     Indication: Depression
     Route: 064
  2. ESCITALOPRAM [Suspect]
     Active Substance: ESCITALOPRAM OXALATE
     Indication: Depression
     Route: 064

REACTIONS (6)
  - Retrognathia [Not Recovered/Not Resolved]
  - Hypotonia [Not Recovered/Not Resolved]
  - Talipes [Not Recovered/Not Resolved]
  - Congenital limb hyperextension [Not Recovered/Not Resolved]
  - Infantile postural asymmetry [Not Recovered/Not Resolved]
  - Hand deformity [Not Recovered/Not Resolved]

NARRATIVE: CASE EVENT DATE: 20231024
